FAERS Safety Report 19450073 (Version 2)
Quarter: 2021Q2

REPORT INFORMATION
  Report Type: Spontaneous
  Country: US (occurrence: US)
  Receive Date: 20210622
  Receipt Date: 20210630
  Transmission Date: 20210717
  Serious: Yes (Death, Hospitalization, Other)
  Sender: FDA-Public Use
  Company Number: US-PFIZER INC-2021664667

PATIENT
  Age: 96 Year
  Sex: Female
  Weight: 58.97 kg

DRUGS (6)
  1. FUROSEMIDE. [Suspect]
     Active Substance: FUROSEMIDE
     Dosage: UNK
     Route: 042
  2. FUROSEMIDE. [Suspect]
     Active Substance: FUROSEMIDE
     Indication: CARDIAC FAILURE CONGESTIVE
     Dosage: 40 MG, DAILY
     Route: 048
     Dates: start: 201601, end: 202104
  3. LASIX [Suspect]
     Active Substance: FUROSEMIDE
     Indication: CARDIAC FAILURE CONGESTIVE
     Dosage: 20 MG ONE IN THE MORNING AND ONE IN THE EVENING
     Route: 048
     Dates: start: 202104
  4. LASIX [Suspect]
     Active Substance: FUROSEMIDE
     Indication: BLOOD PRESSURE ABNORMAL
  5. LASIX [Suspect]
     Active Substance: FUROSEMIDE
     Dosage: UNK
     Route: 042
  6. FUROSEMIDE. [Suspect]
     Active Substance: FUROSEMIDE
     Indication: BLOOD PRESSURE ABNORMAL

REACTIONS (26)
  - Blood calcium abnormal [Not Recovered/Not Resolved]
  - Confusional state [Unknown]
  - Tremor [Unknown]
  - Blood zinc decreased [Unknown]
  - Blood chloride decreased [Unknown]
  - Pruritus [Unknown]
  - Muscle spasms [Unknown]
  - Dehydration [Unknown]
  - Feeling abnormal [Unknown]
  - Blood potassium decreased [Unknown]
  - Pulmonary oedema [Fatal]
  - Blood glucose decreased [Unknown]
  - Urine odour abnormal [Unknown]
  - Headache [Unknown]
  - Dry mouth [Not Recovered/Not Resolved]
  - Peripheral swelling [Unknown]
  - Constipation [Unknown]
  - Coagulopathy [Unknown]
  - Musculoskeletal stiffness [Unknown]
  - Sepsis [Fatal]
  - Coma [Not Recovered/Not Resolved]
  - Vision blurred [Unknown]
  - Eye swelling [Unknown]
  - Arthralgia [Unknown]
  - Blood electrolytes decreased [Unknown]
  - Blood sodium decreased [Unknown]

NARRATIVE: CASE EVENT DATE: 202011
